FAERS Safety Report 11442882 (Version 1)
Quarter: 2015Q3

REPORT INFORMATION
  Report Type: Spontaneous
  Country: FI (occurrence: FI)
  Receive Date: 20150901
  Receipt Date: 20150901
  Transmission Date: 20151125
  Serious: Yes (Other)
  Sender: FDA-Public Use
  Company Number: FI-SHIRE-FI201510673

PATIENT
  Age: 53 Year
  Sex: Female

DRUGS (3)
  1. KESTINE [Concomitant]
     Active Substance: EBASTINE
     Indication: PROPHYLAXIS
     Dosage: UNK, UNKNOWN
     Route: 065
  2. CINRYZE [Suspect]
     Active Substance: HUMAN C1-ESTERASE INHIBITOR
     Indication: HEREDITARY ANGIOEDEMA
     Dosage: 1000 UNITS, OTHER (AT INTERVALS OF 48 HRS AND ADDITIONAL DOSES DUE O INSUFFICIENT EFFICACY)
     Route: 042
  3. CINRYZE [Suspect]
     Active Substance: HUMAN C1-ESTERASE INHIBITOR
     Indication: PROPHYLAXIS

REACTIONS (7)
  - Drug effect decreased [Recovered/Resolved]
  - Choking sensation [Recovered/Resolved]
  - Inappropriate schedule of drug administration [Unknown]
  - Arthropod bite [Unknown]
  - Nasal congestion [Recovered/Resolved]
  - Erythema [Recovered/Resolved]
  - Urticaria [Unknown]
